FAERS Safety Report 7240370-2 (Version None)
Quarter: 2011Q1

REPORT INFORMATION
  Report Type: 
  Country: None (occurrence: None)
  Receive Date: 20110119
  Receipt Date: 20110119
  Transmission Date: 20110831
  Serious: Yes (Hospitalization)
  Sender: FDA-Public Use
  Company Number: None

PATIENT
  Age: 32 Year
  Sex: Male
  Weight: 74.8435 kg

DRUGS (1)
  1. LEVAQUIN [Suspect]
     Indication: EPIDIDYMITIS
     Dosage: 1 DAILY PO
     Route: 048
     Dates: start: 20110111, end: 20110113

REACTIONS (15)
  - MYALGIA [None]
  - MUSCLE RUPTURE [None]
  - ARTHRALGIA [None]
  - SWELLING [None]
  - PAIN [None]
  - FEELING ABNORMAL [None]
  - TENDON PAIN [None]
  - DIZZINESS [None]
  - PAIN IN EXTREMITY [None]
  - OEDEMA PERIPHERAL [None]
  - FATIGUE [None]
  - VITREOUS FLOATERS [None]
  - MUSCULAR WEAKNESS [None]
  - JOINT SWELLING [None]
  - BEDRIDDEN [None]
